FAERS Safety Report 12610461 (Version 1)
Quarter: 2016Q3

REPORT INFORMATION
  Report Type: Spontaneous
  Country: JP (occurrence: JP)
  Receive Date: 20160801
  Receipt Date: 20160801
  Transmission Date: 20161109
  Serious: Yes (Other)
  Sender: FDA-Public Use
  Company Number: JP-TEVA-2016-JP-001502J

PATIENT
  Age: 69 Year
  Sex: Female

DRUGS (8)
  1. LUNESTA [Concomitant]
     Active Substance: ESZOPICLONE
     Route: 065
  2. LOXOPROFEN NA TABLET 60MG TEVA [Interacting]
     Active Substance: LOXOPROFEN SODIUM
     Indication: PRODUCT USED FOR UNKNOWN INDICATION
     Dosage: 120 MILLIGRAM DAILY;
     Route: 048
     Dates: start: 20160608, end: 20160621
  3. REBAMIPIDE [Concomitant]
     Active Substance: REBAMIPIDE
     Route: 065
  4. CLOPIDOGREL TABLET 75MG TEVA [Interacting]
     Active Substance: CLOPIDOGREL BISULFATE
     Indication: CEREBRAL INFARCTION
     Dosage: 75 MILLIGRAM DAILY;
     Route: 048
     Dates: start: 20160418
  5. BELSOMRA [Concomitant]
     Active Substance: SUVOREXANT
     Route: 065
  6. JUVELA N [Concomitant]
     Active Substance: TOCOPHERYL NICOTINATE, D-.ALPHA.
     Route: 065
  7. NICERGOLINE [Concomitant]
     Active Substance: NICERGOLINE
     Route: 065
  8. CLOPIDOGREL TABLET 25MG TEVA [Suspect]
     Active Substance: CLOPIDOGREL BISULFATE
     Indication: CEREBRAL INFARCTION
     Dosage: 50 MILLIGRAM DAILY;
     Route: 048
     Dates: start: 20160411, end: 20160417

REACTIONS (4)
  - Product substitution issue [None]
  - Haemorrhage subcutaneous [Recovering/Resolving]
  - Drug interaction [Recovering/Resolving]
  - Product substitution issue [Unknown]

NARRATIVE: CASE EVENT DATE: 20160620
